FAERS Safety Report 7042574-0 (Version None)
Quarter: 2010Q4

REPORT INFORMATION
  Report Type: 
  Country: None (occurrence: None)
  Receive Date: 20101013
  Receipt Date: 20100928
  Transmission Date: 20110411
  Serious: Yes (Life-Threatening)
  Sender: FDA-Public Use
  Company Number: GXKR2010GB11018

PATIENT
  Age: 88 Year
  Sex: Male
  Weight: 74 kg

DRUGS (7)
  1. METFORMIN HCL [Suspect]
     Dosage: 850 MG, TID
     Route: 048
     Dates: start: 19980101, end: 20100910
  2. DOXAZOSIN MESYLATE [Concomitant]
     Route: 065
  3. FERROUS SULFATE TAB [Concomitant]
     Route: 065
  4. GLICLAZIDE [Concomitant]
     Route: 065
  5. LISINOPRIL [Concomitant]
     Route: 065
  6. OMEPRAZOLE [Concomitant]
     Dosage: 40 MG, QD
     Dates: start: 20100615
  7. PIOGLITAZONE [Concomitant]
     Route: 065

REACTIONS (3)
  - DRUG INTERACTION [None]
  - HYPERKALAEMIA [None]
  - RENAL TUBULAR ACIDOSIS [None]
